FAERS Safety Report 7512968-5 (Version None)
Quarter: 2011Q2

REPORT INFORMATION
  Report Type: 
  Country: None (occurrence: None)
  Receive Date: 20110531
  Receipt Date: 20101208
  Transmission Date: 20111010
  Serious: No
  Sender: FDA-Public Use
  Company Number: US-NOVEN-ALL1-2010-06405

PATIENT
  Sex: Male
  Weight: 45.351 kg

DRUGS (3)
  1. DAYTRANA [Suspect]
     Dosage: 30 MG, 1X/DAY:QD
     Route: 062
     Dates: start: 20100101
  2. DAYTRANA [Suspect]
     Indication: ATTENTION DEFICIT/HYPERACTIVITY DISORDER
     Dosage: UNK MG, 1X/DAY:QD
     Route: 062
     Dates: start: 20070101, end: 20100101
  3. RITALIN [Concomitant]
     Dosage: UNK

REACTIONS (5)
  - INCORRECT DRUG ADMINISTRATION DURATION [None]
  - APPLICATION SITE DISCOLOURATION [None]
  - DECREASED APPETITE [None]
  - DRUG EFFECT DELAYED [None]
  - WRONG TECHNIQUE IN DRUG USAGE PROCESS [None]
